FAERS Safety Report 6763220-7 (Version None)
Quarter: 2010Q2

REPORT INFORMATION
  Report Type: 
  Country: None (occurrence: None)
  Receive Date: 20100609
  Receipt Date: 20100602
  Transmission Date: 20101027
  Serious: Yes (Hospitalization)
  Sender: FDA-Public Use
  Company Number: US-AMGEN-KDC413991

PATIENT
  Sex: Male

DRUGS (3)
  1. DENOSUMAB [Suspect]
     Indication: PROSTATE CANCER
     Route: 058
     Dates: start: 20090601
  2. CALCIUM CARBONATE [Concomitant]
  3. VITAMIN D [Concomitant]

REACTIONS (2)
  - ABDOMINAL PAIN [None]
  - LOCALISED OEDEMA [None]
